FAERS Safety Report 10240185 (Version 2)
Quarter: 2014Q2

REPORT INFORMATION
  Report Type: Report from Study
  Country: FR (occurrence: FR)
  Receive Date: 20140617
  Receipt Date: 20140617
  Transmission Date: 20141212
  Serious: Yes (Hospitalization, Other)
  Sender: FDA-Public Use
  Company Number: FR-ROCHE-1192802

PATIENT
  Sex: Male
  Weight: 85 kg

DRUGS (5)
  1. MYCOPHENOLATE MOFETIL [Suspect]
     Indication: RENAL TRANSPLANT
     Route: 048
     Dates: start: 20130116
  2. EVEROLIMUS [Suspect]
     Indication: RENAL TRANSPLANT
     Route: 048
     Dates: start: 20130120, end: 20130303
  3. PREDNISONE [Suspect]
     Indication: RENAL TRANSPLANT
     Route: 048
     Dates: start: 20130118
  4. ANTITHYMOCYTE IMMUNOGLOBULIN [Suspect]
     Indication: RENAL TRANSPLANT
     Route: 042
     Dates: start: 20130117, end: 20130120
  5. PROGRAF [Concomitant]
     Indication: RENAL TRANSPLANT
     Route: 065
     Dates: start: 20130304

REACTIONS (3)
  - Prostatitis [Recovered/Resolved]
  - Urinary tract infection bacterial [Recovered/Resolved]
  - Anaemia [Recovered/Resolved]
